FAERS Safety Report 4332643-8 (Version None)
Quarter: 2004Q2

REPORT INFORMATION
  Report Type: 
  Country: None (occurrence: None)
  Receive Date: 20040401
  Receipt Date: 20040315
  Transmission Date: 20050107
  Serious: Yes (Death)
  Sender: FDA-Public Use
  Company Number: 8005824

PATIENT
  Age: 18 Year
  Sex: Female

DRUGS (2)
  1. KEPPRA [Suspect]
     Indication: EPILEPSY
     Dosage: 250 MG 2/D
     Dates: start: 20040304, end: 20040313
  2. VALPROIC ACID [Suspect]
     Indication: EPILEPSY
     Dosage: 900 MG 1/D
     Dates: start: 20040207, end: 20040313

REACTIONS (1)
  - SUDDEN DEATH [None]
